FAERS Safety Report 6632266-1 (Version None)
Quarter: 2010Q1

REPORT INFORMATION
  Report Type: 
  Country: None (occurrence: None)
  Receive Date: 20100312
  Receipt Date: 20100304
  Transmission Date: 20100710
  Serious: Yes (Other)
  Sender: FDA-Public Use
  Company Number: US-AMGEN-QUU389479

PATIENT
  Sex: Female
  Weight: 77.7 kg

DRUGS (2)
  1. NPLATE [Suspect]
     Indication: IDIOPATHIC THROMBOCYTOPENIC PURPURA
     Dates: start: 20081218, end: 20090203
  2. PREDNISONE [Concomitant]

REACTIONS (4)
  - ANAEMIA [None]
  - FLUID RETENTION [None]
  - OEDEMA [None]
  - THROMBOCYTOPENIA [None]
